FAERS Safety Report 20230877 (Version 1)
Quarter: 2021Q4

REPORT INFORMATION
  Report Type: Spontaneous
  Country: US (occurrence: US)
  Receive Date: 20211227
  Receipt Date: 20211227
  Transmission Date: 20220303
  Serious: Yes (Hospitalization)
  Sender: FDA-Public Use
  Company Number: US-STRIDES ARCOLAB LIMITED-2021SP030671

PATIENT
  Age: 20 Month
  Sex: Female

DRUGS (3)
  1. PREDNISOLONE [Suspect]
     Active Substance: PREDNISOLONE
     Indication: Hypercalcaemia
     Dosage: UNK
     Route: 065
  2. L^IL CRITTERS CALCIUM + D3 [Concomitant]
     Indication: Dental caries
     Dosage: UNK
     Route: 065
  3. L^IL CRITTERS CALCIUM + D3 [Concomitant]
     Indication: Intentional product misuse to child

REACTIONS (1)
  - Drug ineffective for unapproved indication [Unknown]
